FAERS Safety Report 7080498-3 (Version None)
Quarter: 2010Q4

REPORT INFORMATION
  Report Type: 
  Country: None (occurrence: None)
  Receive Date: 20101103
  Receipt Date: 20101022
  Transmission Date: 20110411
  Serious: Yes (Hospitalization)
  Sender: FDA-Public Use
  Company Number: US-CELGENEUS-163-21880-10092613

PATIENT
  Sex: Male

DRUGS (2)
  1. REVLIMID [Suspect]
     Indication: MULTIPLE MYELOMA
     Route: 048
     Dates: start: 20100417, end: 20100919
  2. METHIMAZOLE [Concomitant]
     Indication: THYROID DISORDER
     Route: 065

REACTIONS (4)
  - BLOOD ELECTROLYTES DECREASED [None]
  - DELIRIUM [None]
  - INSOMNIA [None]
  - VOMITING [None]
